FAERS Safety Report 23078712 (Version 1)
Quarter: 2023Q4

REPORT INFORMATION
  Report Type: Spontaneous
  Country: US (occurrence: US)
  Receive Date: 20231018
  Receipt Date: 20231018
  Transmission Date: 20240110
  Serious: No
  Sender: FDA-Public Use
  Company Number: US-BRISTOL-MYERS SQUIBB COMPANY-2023-136311

PATIENT
  Age: 66 Year
  Sex: Female

DRUGS (2)
  1. REVLIMID [Suspect]
     Active Substance: LENALIDOMIDE
     Indication: Plasma cell myeloma
     Dates: start: 20230523
  2. REVLIMID [Suspect]
     Active Substance: LENALIDOMIDE
     Dosage: 14 ON/7 OFF
     Route: 048

REACTIONS (3)
  - Product distribution issue [Unknown]
  - Nausea [Unknown]
  - Off label use [Unknown]
